FAERS Safety Report 21624772 (Version 1)
Quarter: 2022Q4

REPORT INFORMATION
  Report Type: Other
  Country: None (occurrence: PT)
  Receive Date: 20221122
  Receipt Date: 20221122
  Transmission Date: 20230113
  Serious: Yes (Hospitalization, Other)
  Sender: FDA-Public Use
  Company Number: PT-Ajanta Pharma USA Inc.-2135132

PATIENT
  Age: 70 Year
  Sex: Female

DRUGS (1)
  1. AMLODIPINE\OLMESARTAN [Suspect]
     Active Substance: AMLODIPINE\OLMESARTAN
     Indication: Hypertension

REACTIONS (4)
  - Metabolic acidosis [Recovered/Resolved]
  - Hypoalbuminaemia [Recovered/Resolved]
  - Hypokalaemia [Recovered/Resolved]
  - Gastrointestinal disorder [Recovered/Resolved]
